FAERS Safety Report 9216421 (Version 1)
Quarter: 2013Q2

REPORT INFORMATION
  Report Type: Spontaneous
  Country: US (occurrence: US)
  Receive Date: 20130408
  Receipt Date: 20130408
  Transmission Date: 20140414
  Serious: Yes (Other)
  Sender: FDA-Public Use
  Company Number: US-ELI_LILLY_AND_COMPANY-US201303010156

PATIENT
  Age: 28 Year
  Sex: Female

DRUGS (3)
  1. ZYPREXA [Suspect]
     Dosage: UNK, UNKNOWN
  2. PRISTIQ [Concomitant]
     Indication: DEPRESSION
     Dosage: 50 MG, QD
     Route: 048
     Dates: start: 201211
  3. LITHIUM [Concomitant]

REACTIONS (10)
  - Syncope [Unknown]
  - Psychotic disorder [Unknown]
  - Convulsion [Unknown]
  - Skin discolouration [Unknown]
  - Hypophagia [Unknown]
  - Nausea [Unknown]
  - Vomiting [Unknown]
  - Headache [Unknown]
  - Anxiety [Unknown]
  - Dyskinesia [Unknown]
